FAERS Safety Report 23696489 (Version 1)
Quarter: 2024Q2

REPORT INFORMATION
  Report Type: Spontaneous
  Country: DE (occurrence: DE)
  Receive Date: 20240402
  Receipt Date: 20240402
  Transmission Date: 20240716
  Serious: Yes (Life-Threatening, Hospitalization, Other)
  Sender: FDA-Public Use
  Company Number: DE-ALKEM LABORATORIES LIMITED-DE-ALKEM-2024-05551

PATIENT
  Age: 74 Year
  Sex: Male

DRUGS (18)
  1. QUETIAPINE FUMARATE [Interacting]
     Active Substance: QUETIAPINE FUMARATE
     Indication: Product used for unknown indication
     Dosage: 50 MILLIGRAM, QD
     Route: 048
     Dates: start: 20131103
  2. QUETIAPINE FUMARATE [Interacting]
     Active Substance: QUETIAPINE FUMARATE
     Dosage: 100 MILLIGRAM, QD (TABLET)
     Route: 048
     Dates: start: 20131104, end: 20131105
  3. QUETIAPINE FUMARATE [Interacting]
     Active Substance: QUETIAPINE FUMARATE
     Dosage: 200 MILLIGRAM, QD (TABLET)
     Route: 048
     Dates: start: 20131106, end: 20131108
  4. QUETIAPINE FUMARATE [Interacting]
     Active Substance: QUETIAPINE FUMARATE
     Dosage: 300 MILLIGRAM, QD (TABLET)
     Route: 048
     Dates: start: 20131109, end: 20131112
  5. QUETIAPINE FUMARATE [Interacting]
     Active Substance: QUETIAPINE FUMARATE
     Dosage: 400 MILLIGRAM, QD (TABLET)
     Route: 048
     Dates: start: 20131113, end: 20131115
  6. QUETIAPINE FUMARATE [Interacting]
     Active Substance: QUETIAPINE FUMARATE
     Dosage: 450 MILLIGRAM, QD (TABLET)
     Route: 048
     Dates: start: 20131116, end: 20131118
  7. QUETIAPINE FUMARATE [Interacting]
     Active Substance: QUETIAPINE FUMARATE
     Dosage: 500 MILLIGRAM, QD (TABLET)
     Route: 048
     Dates: start: 20131119, end: 20131121
  8. QUETIAPINE FUMARATE [Interacting]
     Active Substance: QUETIAPINE FUMARATE
     Dosage: 400 MILLIGRAM, QD (TABLET)
     Route: 048
     Dates: start: 20131122
  9. QUETIAPINE FUMARATE [Interacting]
     Active Substance: QUETIAPINE FUMARATE
     Dosage: UNK (DOSE REDUCED)
     Route: 065
  10. ARIPIPRAZOLE [Interacting]
     Active Substance: ARIPIPRAZOLE
     Indication: Product used for unknown indication
     Dosage: 10 MILLIGRAM, QD (TABLET)
     Route: 048
     Dates: start: 20131101, end: 20131112
  11. ARIPIPRAZOLE [Interacting]
     Active Substance: ARIPIPRAZOLE
     Dosage: 20 MILLIGRAM, QD (TABLET)
     Route: 048
     Dates: start: 20131113, end: 20131115
  12. ARIPIPRAZOLE [Interacting]
     Active Substance: ARIPIPRAZOLE
     Dosage: 30 MILLIGRAM, QD (TABLET)
     Route: 048
     Dates: start: 20131116, end: 20131215
  13. VALPROATE SODIUM [Interacting]
     Active Substance: VALPROATE SODIUM
     Indication: Product used for unknown indication
     Dosage: 900 MILLIGRAM, QD
     Route: 048
     Dates: start: 20130301, end: 20131101
  14. VALPROATE SODIUM [Interacting]
     Active Substance: VALPROATE SODIUM
     Dosage: 1600 MILLIGRAM, QD
     Route: 048
     Dates: start: 20131102, end: 20131110
  15. VALPROATE SODIUM [Interacting]
     Active Substance: VALPROATE SODIUM
     Dosage: 2400 MILLIGRAM, QD
     Route: 065
     Dates: start: 20131111, end: 20140315
  16. ALFUZOSIN [Concomitant]
     Active Substance: ALFUZOSIN
     Indication: Product used for unknown indication
     Dosage: 10 MILLIGRAM, QD
     Route: 048
     Dates: start: 20120101
  17. FINASTERIDE [Concomitant]
     Active Substance: FINASTERIDE
     Indication: Product used for unknown indication
     Dosage: 5 MILLIGRAM, QD
     Route: 048
     Dates: start: 20120101
  18. LITHIUM [Concomitant]
     Active Substance: LITHIUM
     Indication: Product used for unknown indication
     Dosage: UNK
     Route: 065

REACTIONS (3)
  - Coma [Recovered/Resolved]
  - Drug interaction [Unknown]
  - Parkinsonism [Unknown]

NARRATIVE: CASE EVENT DATE: 20131121
